FAERS Safety Report 18690384 (Version 6)
Quarter: 2022Q4

REPORT INFORMATION
  Report Type: Report from Study
  Country: ES (occurrence: ES)
  Receive Date: 20201231
  Receipt Date: 20221202
  Transmission Date: 20230112
  Serious: Yes (Life-Threatening, Other)
  Sender: FDA-Public Use
  Company Number: NVSC2020ES341647

PATIENT
  Age: 66 Year
  Sex: Female
  Weight: 88 kg

DRUGS (12)
  1. CAPMATINIB [Suspect]
     Active Substance: CAPMATINIB
     Indication: Non-small cell lung cancer
     Dosage: 800 MG, BID
     Route: 048
     Dates: start: 20201203, end: 20201223
  2. PEMBROLIZUMAB [Suspect]
     Active Substance: PEMBROLIZUMAB
     Indication: Non-small cell lung cancer
     Dosage: 200 MG
     Route: 042
     Dates: start: 20201204, end: 20201204
  3. METFORMIN HYDROCHLORIDE [Concomitant]
     Active Substance: METFORMIN HYDROCHLORIDE
     Indication: Diabetes mellitus
     Dosage: UNK
     Route: 065
     Dates: start: 20201126
  4. CYMBALTA [Concomitant]
     Active Substance: DULOXETINE HYDROCHLORIDE
     Indication: Anxiety
     Dosage: UNK
     Route: 065
     Dates: start: 2020
  5. OMEPRAZOLE [Concomitant]
     Active Substance: OMEPRAZOLE
     Indication: General physical condition
     Dosage: UNK
     Route: 065
     Dates: start: 2020
  6. RIVOTRIL [Concomitant]
     Active Substance: CLONAZEPAM
     Indication: Depression
     Dosage: UNK
     Route: 065
     Dates: start: 2020
  7. SIMVASTATIN [Concomitant]
     Active Substance: SIMVASTATIN
     Indication: Dyslipidaemia
     Dosage: UNK
     Route: 065
     Dates: start: 2020
  8. HEPARIN [Concomitant]
     Active Substance: HEPARIN SODIUM
     Indication: General physical condition
     Dosage: UNK
     Route: 065
     Dates: start: 2020
  9. CLOTHIAPINE [Concomitant]
     Active Substance: CLOTHIAPINE
     Indication: Insomnia
     Dosage: UNK
     Route: 065
     Dates: start: 20200101
  10. AZITHROMYCIN [Concomitant]
     Active Substance: AZITHROMYCIN
     Indication: Respiratory tract infection
     Dosage: UNK
     Route: 065
     Dates: start: 20201216, end: 20201219
  11. CODEINE PHOSPHATE [Concomitant]
     Active Substance: CODEINE PHOSPHATE
     Indication: Respiratory tract infection
     Route: 065
     Dates: start: 20201209, end: 20201213
  12. CODEINE PHOSPHATE [Concomitant]
     Active Substance: CODEINE PHOSPHATE
     Dosage: UNK
     Route: 065
     Dates: start: 20201214, end: 20201220

REACTIONS (1)
  - Hepatotoxicity [Recovered/Resolved]

NARRATIVE: CASE EVENT DATE: 20201223
